FAERS Safety Report 23505180 (Version 1)
Quarter: 2024Q1

REPORT INFORMATION
  Report Type: Spontaneous
  Country: FR (occurrence: FR)
  Receive Date: 20240209
  Receipt Date: 20240209
  Transmission Date: 20240410
  Serious: Yes (Other)
  Sender: FDA-Public Use
  Company Number: None

PATIENT

DRUGS (4)
  1. GRAZAX [Suspect]
     Active Substance: PHLEUM PRATENSE POLLEN
     Indication: Immune tolerance induction
     Dosage: 1 DOSAGE FORM, QD
     Route: 060
     Dates: start: 202210, end: 2023
  2. KARDEGIC [Suspect]
     Active Substance: ASPIRIN DL-LYSINE
     Indication: Cardiovascular event prophylaxis
     Dosage: 1 DOSAGE FORM, QD
     Route: 048
  3. CIFENLINE [Suspect]
     Active Substance: CIFENLINE
     Indication: Arrhythmia
     Route: 048
  4. ACLASTA [Concomitant]
     Active Substance: ZOLEDRONIC ACID
     Indication: Prophylaxis

REACTIONS (1)
  - Polymyalgia rheumatica [Not Recovered/Not Resolved]

NARRATIVE: CASE EVENT DATE: 20221201
